FAERS Safety Report 5018470-7 (Version None)
Quarter: 2006Q2

REPORT INFORMATION
  Report Type: 
  Country: None (occurrence: None)
  Receive Date: 20060530
  Receipt Date: 20050412
  Transmission Date: 20061013
  Serious: Yes (Hospitalization, Other)
  Sender: FDA-Public Use
  Company Number: 2005057677

PATIENT
  Age: 85 Year
  Sex: Female

DRUGS (4)
  1. LYRICA [Suspect]
     Indication: ILL-DEFINED DISORDER
     Dosage: 75 MG (75 MG, 1 IN 1 D), ORAL
     Route: 048
     Dates: start: 20050406, end: 20050406
  2. PREDNISONE TAB [Concomitant]
  3. ISOSORBIDE DINITRATE [Concomitant]
  4. IBUPROFEN [Concomitant]

REACTIONS (3)
  - DIZZINESS [None]
  - FALL [None]
  - HIP FRACTURE [None]
